FAERS Safety Report 22979889 (Version 5)
Quarter: 2025Q1

REPORT INFORMATION
  Report Type: Spontaneous
  Country: US (occurrence: US)
  Receive Date: 20230925
  Receipt Date: 20250221
  Transmission Date: 20250408
  Serious: No
  Sender: PFIZER
  Company Number: US-PFIZER INC-202300307080

PATIENT
  Age: 86 Year
  Sex: Male
  Weight: 75.8 kg

DRUGS (2)
  1. VYNDAMAX [Suspect]
     Active Substance: TAFAMIDIS
     Indication: Amyloidosis
     Dosage: 61 MG, 1X/DAY
     Route: 048
     Dates: start: 20220622, end: 20250210
  2. VYNDAMAX [Suspect]
     Active Substance: TAFAMIDIS
     Indication: Cardiac amyloidosis

REACTIONS (2)
  - Tooth disorder [Recovered/Resolved]
  - Oral disorder [Recovered/Resolved]
